APPROVED DRUG PRODUCT: SODIUM NITROPRUSSIDE
Active Ingredient: SODIUM NITROPRUSSIDE
Strength: 25MG/ML
Dosage Form/Route: INJECTABLE;INJECTION
Application: A209834 | Product #001
Applicant: CHARTWELL RX SCIENCES LLC
Approved: Jun 26, 2018 | RLD: No | RS: No | Type: DISCN